FAERS Safety Report 4468130-6 (Version None)
Quarter: 2004Q4

REPORT INFORMATION
  Report Type: 
  Country: None (occurrence: None)
  Receive Date: 20041004
  Receipt Date: 20040920
  Transmission Date: 20050328
  Serious: Yes (Hospitalization, Other)
  Sender: FDA-Public Use
  Company Number: 2004071131

PATIENT
  Age: 82 Year
  Sex: Female

DRUGS (13)
  1. ATARAX [Suspect]
     Indication: URTICARIA
     Dosage: ORAL
     Route: 048
  2. AGYRAX (BUPHENINE HYDROCHLORIDE, HYDROXYZINE HYDROCHLORIDE, MECLOZINE [Suspect]
     Indication: VERTIGO
     Dosage: ORAL
     Route: 048
  3. OXATOMIDE [Suspect]
     Indication: URTICARIA
     Dosage: 30 MG, ORAL
     Route: 048
     Dates: start: 20040802, end: 20040807
  4. FENOFIBRATE [Suspect]
     Indication: HYPERCHOLESTEROLAEMIA
     Dosage: 50 MG, ORAL
     Route: 048
  5. ALDACTAZIDE [Suspect]
     Indication: ESSENTIAL HYPERTENSION
     Dosage: ORAL
     Route: 048
  6. ACETORPHAN (ACETORPHAN) [Suspect]
     Indication: DIARRHOEA
     Dosage: ORAL
     Route: 048
  7. ALL OTHER THERAPEUTIC PRODUCTS (ALL OTHER THERAPEUTIC PRODUCTS) [Concomitant]
  8. FUMARIA EXTRACT (FUMARIA EXTRACT) [Concomitant]
  9. ETHANOLAMINE ACETYLLEUCINATE (ETHANOLAMINE ACETYLLEUCINATE) [Concomitant]
  10. DOMPERIDONE (DOMPERIDONE) [Concomitant]
  11. NIFUROXAZIDE (NIFUROXAZIDE) [Concomitant]
  12. METOPIMAZINE (METOPIMAZINE) [Concomitant]
  13. IBUPROFEN [Concomitant]

REACTIONS (3)
  - HEPATITIS [None]
  - HYPERCALCAEMIA [None]
  - HYPOKALAEMIA [None]
